FAERS Safety Report 24908190 (Version 5)
Quarter: 2025Q1

REPORT INFORMATION
  Report Type: Spontaneous
  Country: JP (occurrence: JP)
  Receive Date: 20250131
  Receipt Date: 20250327
  Transmission Date: 20250409
  Serious: Yes (Life-Threatening, Hospitalization, Other)
  Sender: GLAXOSMITHKLINE
  Company Number: JP-GSKJP-JP2025JPN012334AA

PATIENT

DRUGS (23)
  1. DAPRODUSTAT [Suspect]
     Active Substance: DAPRODUSTAT
     Indication: Nephrogenic anaemia
     Route: 048
  2. DAPRODUSTAT [Suspect]
     Active Substance: DAPRODUSTAT
     Dosage: 6 MG, 1D, AFTER BREAKFAST
     Route: 048
     Dates: start: 20230328
  3. TENAPANOR HYDROCHLORIDE [Concomitant]
     Active Substance: TENAPANOR HYDROCHLORIDE
     Indication: Hyperphosphataemia
     Dosage: 5 MG, 1D,RIGHT BEFORE DINNER, CHANGED TO RIGHT AFTER DINNER FOR SEVERE DIARRHOEA
     Route: 048
     Dates: start: 20241218
  4. CALCIUM CARBONATE [Concomitant]
     Active Substance: CALCIUM CARBONATE
     Indication: Hyperphosphataemia
     Dosage: 4 TABS OF 500 MG, BID, AFTER BREAKFAST AND DINNER
  5. FUROSEMIDE [Concomitant]
     Active Substance: FUROSEMIDE
     Dosage: 20 MG, 1D, AFTER BREAKFAST
  6. FUROSEMIDE [Concomitant]
     Active Substance: FUROSEMIDE
     Dosage: 40 MG, 1D, AFTER BREAKFAST
  7. NIFEDIPINE [Concomitant]
     Active Substance: NIFEDIPINE
     Dosage: 2 TABS OF 40 MG, BID, AFTER BREAKFAST AND DINNER
  8. FEBUXOSTAT [Concomitant]
     Active Substance: FEBUXOSTAT
     Dosage: 20 MG, 1D, AFTER BREAKFAST
  9. TENELIGLIPTIN [Concomitant]
     Active Substance: TENELIGLIPTIN
     Dosage: 20 MG, 1D, AFTER BREAKFAST
  10. PITAVASTATIN CALCIUM [Concomitant]
     Active Substance: PITAVASTATIN CALCIUM
     Dosage: 2 MG, 1D, AFTER BREAKFAST
  11. SODIUM BICARBONATE [Concomitant]
     Active Substance: SODIUM BICARBONATE
     Dosage: 1 G, BID, AFTER BREAKFAST AND DINNER
  12. LINAGLIPTIN [Concomitant]
     Active Substance: LINAGLIPTIN
     Dosage: 5 MG, 1D, AFTER BREAKFAST
  13. ALFACALCIDOL [Concomitant]
     Active Substance: ALFACALCIDOL
     Dosage: 0.5 ?G, 1D, AFTER BREAKFAST
  14. OLMESARTAN MEDOXOMIL [Concomitant]
     Active Substance: OLMESARTAN MEDOXOMIL
     Dosage: 20 MG, 1D, AFTER DINNER
  15. SHAKUYAKUKANZOTO [Concomitant]
     Active Substance: HERBALS
     Indication: Muscle spasms
  16. LANTHANUM CARBONATE [Concomitant]
     Active Substance: LANTHANUM CARBONATE
     Dosage: 2 TABS OF 250 MG, BID, AFTER BREAKFAST AND DINNER
  17. KAYEXALATE [Concomitant]
     Active Substance: SODIUM POLYSTYRENE SULFONATE
  18. CALONAL [Concomitant]
     Active Substance: ACETAMINOPHEN
  19. AMITIZA [Concomitant]
     Active Substance: LUBIPROSTONE
     Indication: Constipation
  20. PARSABIV [Concomitant]
     Active Substance: ETELCALCETIDE HYDROCHLORIDE
     Dates: start: 20240525, end: 20240726
  21. MAXACALCITOL [Concomitant]
     Active Substance: MAXACALCITOL
     Dates: start: 20240525, end: 20240819
  22. Fesin [Concomitant]
     Dates: start: 20240614, end: 20240823
  23. CALCITRIOL [Concomitant]
     Active Substance: CALCITRIOL
     Dates: start: 20240821

REACTIONS (12)
  - Haemorrhagic cyst [Not Recovered/Not Resolved]
  - Lymphadenopathy [Not Recovered/Not Resolved]
  - Transient ischaemic attack [Unknown]
  - Carotid artery stenosis [Unknown]
  - Renal impairment [Unknown]
  - Cardiac tamponade [Unknown]
  - Pericarditis constrictive [Unknown]
  - Ascites [Unknown]
  - Urinary retention [Unknown]
  - Neovascularisation [Unknown]
  - Panic disorder [Unknown]
  - Anorectal disorder [Unknown]

NARRATIVE: CASE EVENT DATE: 20230308
